FAERS Safety Report 7626452-1 (Version None)
Quarter: 2011Q3

REPORT INFORMATION
  Report Type: 
  Country: None (occurrence: None)
  Receive Date: 20110721
  Receipt Date: 20110718
  Transmission Date: 20111222
  Serious: Yes (Other)
  Sender: FDA-Public Use
  Company Number: GB-PFIZER INC-2011162877

PATIENT
  Age: 28 Year
  Sex: Male
  Weight: 76.2 kg

DRUGS (2)
  1. PREGABALIN [Suspect]
     Indication: PAIN
  2. PREGABALIN [Suspect]
     Indication: DEPRESSION
     Dosage: 300 MG, 2X/DAY
     Route: 048
     Dates: start: 20110401, end: 20110708

REACTIONS (4)
  - WITHDRAWAL SYNDROME [None]
  - DEPENDENCE [None]
  - AGITATION [None]
  - MOOD ALTERED [None]
